FAERS Safety Report 9699223 (Version 2)
Quarter: 2013Q4

REPORT INFORMATION
  Report Type: Spontaneous
  Country: US (occurrence: US)
  Receive Date: 20131120
  Receipt Date: 20131120
  Transmission Date: 20140711
  Serious: No
  Sender: FDA-Public Use
  Company Number: US-GILEAD-2008-0014845

PATIENT
  Age: 59 Year
  Sex: Female
  Weight: 111 kg

DRUGS (8)
  1. LETAIRIS [Suspect]
     Indication: PULMONARY ARTERIAL HYPERTENSION
     Route: 048
     Dates: start: 20071019, end: 20071116
  2. LETAIRIS [Suspect]
     Dates: start: 20071201
  3. ADVAIR [Concomitant]
     Indication: ASTHMA
     Route: 055
     Dates: start: 2002
  4. ALBUTEROL MDI [Concomitant]
     Indication: ASTHMA
     Route: 055
  5. AMLODIPINE [Concomitant]
  6. ASA [Concomitant]
  7. HCTZ [Concomitant]
  8. VITAMIN E [Concomitant]

REACTIONS (1)
  - Tachycardia [Recovered/Resolved]
